FAERS Safety Report 6084888-7 (Version None)
Quarter: 2009Q1

REPORT INFORMATION
  Report Type: 
  Country: None (occurrence: None)
  Receive Date: 20090220
  Receipt Date: 20090209
  Transmission Date: 20090719
  Serious: Yes (Hospitalization, Other)
  Sender: FDA-Public Use
  Company Number: PHHY2009MX05040

PATIENT
  Sex: Female

DRUGS (9)
  1. DIOVAN HCT [Suspect]
     Indication: HYPERTENSION
     Dosage: 1 TABLET PER DAY
     Route: 048
     Dates: start: 20060301
  2. DIOVAN HCT [Suspect]
     Dosage: 1/2 TABLET PER DAY
  3. CORTISONE [Concomitant]
     Dosage: UNK
     Dates: end: 20080801
  4. METOPROLOL TARTRATE [Concomitant]
  5. CARBAMAZEPINE [Concomitant]
     Dosage: 200 MG, PER DAY
  6. ACETYLSALICYLIC ACID SRT [Concomitant]
     Dosage: 150 MG PER DAY
  7. AMIODARONE [Concomitant]
     Dosage: 200 MG, PER DAY
  8. MULTI-VITAMINS [Concomitant]
  9. PREDNISONE [Concomitant]
     Dosage: 25 MG PER DAY

REACTIONS (12)
  - ARTHRALGIA [None]
  - ASTHENIA [None]
  - GAIT DISTURBANCE [None]
  - INCONTINENCE [None]
  - INTERVERTEBRAL DISC DEGENERATION [None]
  - MOBILITY DECREASED [None]
  - MUSCULAR WEAKNESS [None]
  - MYELITIS [None]
  - PAIN [None]
  - PAIN IN EXTREMITY [None]
  - PARAESTHESIA [None]
  - SPONDYLITIS [None]
